FAERS Safety Report 4749034-8 (Version None)
Quarter: 2005Q3

REPORT INFORMATION
  Report Type: 
  Country: None (occurrence: None)
  Receive Date: 20050817
  Receipt Date: 20050805
  Transmission Date: 20060218
  Serious: No
  Sender: FDA-Public Use
  Company Number: 2005108337

PATIENT
  Age: 58 Year
  Sex: Male
  Weight: 60 kg

DRUGS (13)
  1. SULPERAZON (SULBACTAM, CEFOPERAZONE) [Suspect]
     Indication: PANCREATITIS ACUTE
     Dosage: 2 GRAM (1 GRAM, 2 IN 1
     Dates: start: 20050711, end: 20050714
  2. CABERGOLINE [Concomitant]
  3. FOY (GABEXATE MESILATE) [Concomitant]
  4. SYMMETREL [Concomitant]
  5. DOPS (DROXIDOPA) [Concomitant]
  6. NAUZELIN (DOMPERIDONE) [Concomitant]
  7. METLIGINE (MIDODRINE HYDROCHLORIDE) [Concomitant]
  8. LEVODOPA BENSERAZIDE HYDROCHLO (BENSERAZIDE HYDROCHLORIDE, LEVODOPA) [Concomitant]
  9. ASPARA-CA (ASPARTATE CALCIUM) [Concomitant]
  10. GLAKAY (MENATETRENONE) [Concomitant]
  11. ALFAROL (ALFACALCIDOL) [Concomitant]
  12. PURSENNID (SENNA LEAF) [Concomitant]
  13. BUP-4 (PROPIVERINE HYDROCHLORIDE) [Concomitant]

REACTIONS (4)
  - AZOTAEMIA [None]
  - HEPATITIS ACUTE [None]
  - LYMPHOCYTE STIMULATION TEST POSITIVE [None]
  - RHABDOMYOLYSIS [None]
